FAERS Safety Report 5941931-0 (Version None)
Quarter: 2008Q4

REPORT INFORMATION
  Report Type: 
  Country: None (occurrence: None)
  Receive Date: 20081105
  Receipt Date: 20081028
  Transmission Date: 20090506
  Serious: Yes (Death)
  Sender: FDA-Public Use
  Company Number: US-GENENTECH-270566

PATIENT
  Age: 45 Year
  Sex: Male
  Weight: 79.5 kg

DRUGS (6)
  1. BEVACIZUMAB [Suspect]
     Indication: GLIOBLASTOMA MULTIFORME
     Dosage: 810 MG, Q2W
     Route: 042
     Dates: start: 20080404, end: 20080418
  2. TEMOZOLOMIDE [Suspect]
     Indication: GLIOBLASTOMA MULTIFORME
     Dosage: 400 MG, QD
     Route: 048
     Dates: start: 20080404, end: 20080408
  3. PRINIVIL [Concomitant]
     Indication: DRUG USE FOR UNKNOWN INDICATION
     Dosage: 5 MG, QD
     Route: 048
  4. FIORICET [Concomitant]
     Indication: DRUG USE FOR UNKNOWN INDICATION
     Dosage: UNK
  5. DARVON [Concomitant]
     Indication: DRUG USE FOR UNKNOWN INDICATION
     Dosage: 65 MG, PRN
  6. FLEXERIL [Concomitant]
     Indication: DRUG USE FOR UNKNOWN INDICATION
     Dosage: 5 MG, PRN

REACTIONS (1)
  - DEATH [None]
